FAERS Safety Report 17534240 (Version 4)
Quarter: 2020Q4

REPORT INFORMATION
  Report Type: Spontaneous
  Country: CH (occurrence: CH)
  Receive Date: 20200312
  Receipt Date: 20201106
  Transmission Date: 20210113
  Serious: Yes (Hospitalization)
  Sender: FDA-Public Use
  Company Number: CH-NOVOPROD-717606

PATIENT
  Age: 45 Year
  Sex: Female

DRUGS (3)
  1. NOVORAPID [Suspect]
     Active Substance: INSULIN ASPART
     Indication: TYPE 1 DIABETES MELLITUS
     Dosage: UNK, SEVERAL BOLUS DOSE
     Route: 058
  2. NOVORAPID [Suspect]
     Active Substance: INSULIN ASPART
     Dosage: UNK
     Route: 058
  3. NOVORAPID [Suspect]
     Active Substance: INSULIN ASPART
     Dosage: UNK, SEVERAL BOLUS DOSE
     Route: 058

REACTIONS (4)
  - Diabetic hyperglycaemic coma [Unknown]
  - Hyperglycaemia [Unknown]
  - Product leakage [Unknown]
  - Product physical issue [Unknown]

NARRATIVE: CASE EVENT DATE: 201912
